FAERS Safety Report 19307890 (Version 11)
Quarter: 2021Q3

REPORT INFORMATION
  Report Type: Other
  Country: GB (occurrence: GB)
  Receive Date: 20210526
  Receipt Date: 20210929
  Transmission Date: 20211014
  Serious: Yes (Other)
  Sender: FDA-Public Use
  Company Number: GB-LUPIN PHARMACEUTICALS INC.-2021-07495

PATIENT
  Age: 73 Year
  Sex: Female
  Weight: 50.2 kg

DRUGS (59)
  1. SERTRALINE [Suspect]
     Active Substance: SERTRALINE HYDROCHLORIDE
     Indication: PRODUCT USED FOR UNKNOWN INDICATION
     Dosage: 50 MILLIGRAM, QD
     Route: 065
  2. FENTANYL. [Suspect]
     Active Substance: FENTANYL
     Dosage: 12 MICROGRAM
     Route: 055
  3. FENTANYL. [Suspect]
     Active Substance: FENTANYL
     Dosage: UNK
     Route: 065
     Dates: start: 20171108
  4. MELPHALAN. [Suspect]
     Active Substance: MELPHALAN
     Dosage: UNK
     Dates: start: 20171106, end: 20171106
  5. VELCADE [Suspect]
     Active Substance: BORTEZOMIB
     Dosage: 1.8 MILLIGRAM
     Route: 058
     Dates: start: 20211107, end: 202111
  6. VELCADE [Suspect]
     Active Substance: BORTEZOMIB
     Dosage: 1.3 MILLIGRAM/SQ. METER, 1 CYCLE
     Route: 058
  7. VELCADE [Suspect]
     Active Substance: BORTEZOMIB
     Dosage: 2 MILLIGRAM/SQ. METER (1 CYCLE)
     Route: 058
     Dates: start: 20171103, end: 20171103
  8. BENDROFLUMETHIAZIDE [Suspect]
     Active Substance: BENDROFLUMETHIAZIDE
     Dosage: 2 MILLIGRAM, QD
     Route: 065
     Dates: start: 20171103, end: 20171103
  9. BENDROFLUMETHIAZIDE [Suspect]
     Active Substance: BENDROFLUMETHIAZIDE
     Dosage: 10 MILLIGRAM, QD
     Route: 065
     Dates: start: 20171103, end: 20171103
  10. BENDROFLUMETHIAZIDE [Suspect]
     Active Substance: BENDROFLUMETHIAZIDE
     Dosage: 1.8 MG/M2 Q_CYCLE / 1.3 MG/M2
     Route: 065
  11. SERTRALINE [Suspect]
     Active Substance: SERTRALINE HYDROCHLORIDE
     Dosage: 50 MILLIGRAM, QD
     Route: 042
     Dates: start: 20171103, end: 20171106
  12. METOCLOPRAMIDE. [Suspect]
     Active Substance: METOCLOPRAMIDE
     Dosage: 20 MILLIGRAM, QD
     Route: 065
  13. ALLOPURINOL. [Suspect]
     Active Substance: ALLOPURINOL
     Dosage: 30 MILLIGRAM, QD
     Route: 065
     Dates: start: 20171120
  14. FENTANYL. [Suspect]
     Active Substance: FENTANYL
     Indication: PRODUCT USED FOR UNKNOWN INDICATION
     Dosage: 12 MICROGRAM
     Route: 065
     Dates: start: 20171108
  15. PREDNISONE. [Suspect]
     Active Substance: PREDNISONE
     Dosage: 70 MILLIGRAM, QD
     Route: 065
     Dates: start: 20171103, end: 20171103
  16. SODIUM CHLORIDE. [Suspect]
     Active Substance: SODIUM CHLORIDE
     Indication: MEDICATION DILUTION
     Dosage: UNK (1 CYCLE)
     Route: 065
     Dates: start: 20171103, end: 20171106
  17. BENDROFLUMETHIAZIDE [Suspect]
     Active Substance: BENDROFLUMETHIAZIDE
     Indication: PRODUCT USED FOR UNKNOWN INDICATION
     Dosage: 2.5 MILLIGRAM, QD
     Route: 065
  18. METOCLOPRAMIDE. [Suspect]
     Active Substance: METOCLOPRAMIDE
     Indication: PRODUCT USED FOR UNKNOWN INDICATION
     Dosage: 10 MILLIGRAM, PRN
     Route: 065
  19. MELPHALAN. [Suspect]
     Active Substance: MELPHALAN
     Indication: PLASMA CELL LEUKAEMIA
     Dosage: UNK (1 CYCLE)
     Route: 065
  20. SODIUM CHLORIDE. [Suspect]
     Active Substance: SODIUM CHLORIDE
     Dosage: UNK
     Route: 042
     Dates: start: 20171110, end: 20171114
  21. VELCADE [Suspect]
     Active Substance: BORTEZOMIB
     Dosage: 1.3 MILLIGRAM/SQ. METER (1 CYCLE)
     Route: 058
     Dates: start: 20171103, end: 20171103
  22. VELCADE [Suspect]
     Active Substance: BORTEZOMIB
     Dosage: 1.8 MILLIGRAM/SQ. METER, 1 CYCLE
     Route: 065
  23. ALLOPURINOL. [Suspect]
     Active Substance: ALLOPURINOL
     Indication: PRODUCT USED FOR UNKNOWN INDICATION
     Dosage: 30 MILLIGRAM, QD
     Route: 065
     Dates: start: 20171104, end: 20171120
  24. DEXAMETHASONE. [Suspect]
     Active Substance: DEXAMETHASONE
     Dosage: 20 MILLIGRAM
     Route: 065
  25. MELPHALAN. [Suspect]
     Active Substance: MELPHALAN
     Dosage: 14 MILLIGRAM
     Route: 065
  26. MELPHALAN. [Suspect]
     Active Substance: MELPHALAN
     Dosage: 14 MILLIGRAM, QD
     Route: 065
     Dates: start: 20171103
  27. PREDNISONE. [Suspect]
     Active Substance: PREDNISONE
     Dosage: UNK
     Route: 065
     Dates: start: 20171106, end: 20171106
  28. SODIUM CHLORIDE. [Suspect]
     Active Substance: SODIUM CHLORIDE
     Dosage: UNK (1 CYCLE)
     Route: 065
     Dates: start: 20171106, end: 20171106
  29. SODIUM CHLORIDE. [Suspect]
     Active Substance: SODIUM CHLORIDE
     Dosage: UNK (1 CYCLE)
     Route: 065
     Dates: start: 20211110, end: 20211110
  30. VELCADE [Suspect]
     Active Substance: BORTEZOMIB
     Dosage: 1.8 MILLIGRAM
     Route: 058
     Dates: start: 20211110, end: 20211114
  31. VELCADE [Suspect]
     Active Substance: BORTEZOMIB
     Dosage: 1.8 MILLIGRAM
     Route: 058
     Dates: start: 20171103, end: 20171103
  32. ALLOPURINOL. [Suspect]
     Active Substance: ALLOPURINOL
     Dosage: 300 MILLIGRAM (DAILY)
     Route: 065
     Dates: start: 20171104, end: 20171120
  33. ALLOPURINOL. [Suspect]
     Active Substance: ALLOPURINOL
     Dosage: 30 MILLIGRAM, QD
     Route: 065
  34. DEXAMETHASONE. [Suspect]
     Active Substance: DEXAMETHASONE
     Indication: PRODUCT USED FOR UNKNOWN INDICATION
     Dosage: 20 MILLIGRAM, QD
     Route: 065
     Dates: start: 20171102, end: 20171106
  35. FENTANYL. [Suspect]
     Active Substance: FENTANYL
     Dosage: 12 MILLIGRAM EVERY 1 HR
     Route: 062
     Dates: start: 20171108
  36. SODIUM CHLORIDE. [Suspect]
     Active Substance: SODIUM CHLORIDE
     Dosage: UNK
  37. VELCADE [Suspect]
     Active Substance: BORTEZOMIB
     Indication: PLASMA CELL LEUKAEMIA
     Dosage: 1.8 MILLIGRAM
     Route: 058
  38. VELCADE [Suspect]
     Active Substance: BORTEZOMIB
     Dosage: 1.3 MILLIGRAM/SQ. METER 1 CYCLE
     Route: 058
     Dates: start: 20171106, end: 20171106
  39. VELCADE [Suspect]
     Active Substance: BORTEZOMIB
     Dosage: 2 MILLIGRAM/SQ. METER (1 CYCLE)
     Route: 058
     Dates: start: 20171107, end: 201711
  40. OMEPRAZOLE. [Suspect]
     Active Substance: OMEPRAZOLE
     Indication: PRODUCT USED FOR UNKNOWN INDICATION
     Dosage: 20 MILLIGRAM, QD (EVERY MORNING)
     Route: 048
  41. RAMIPRIL. [Suspect]
     Active Substance: RAMIPRIL
     Indication: PRODUCT USED FOR UNKNOWN INDICATION
     Dosage: 10 MILLIGRAM, QD (EVERY MORNING)
     Route: 065
  42. DEXAMETHASONE. [Suspect]
     Active Substance: DEXAMETHASONE
     Dosage: 100 MILLIGRAM
     Route: 065
  43. FENTANYL. [Suspect]
     Active Substance: FENTANYL
     Dosage: 1 PER HOURE
     Route: 062
     Dates: start: 20171108
  44. MELPHALAN. [Suspect]
     Active Substance: MELPHALAN
     Dosage: 14 MILLIGRAM
     Route: 065
     Dates: start: 20171107, end: 20171110
  45. PREDNISONE. [Suspect]
     Active Substance: PREDNISONE
     Dosage: 70 MILLIGRAM, QD, 1 CYCLE
     Route: 065
     Dates: start: 20171106, end: 20171106
  46. SODIUM CHLORIDE. [Suspect]
     Active Substance: SODIUM CHLORIDE
     Dosage: UNK (1 CYCLE)
     Route: 065
     Dates: start: 20171107, end: 201711
  47. VELCADE [Suspect]
     Active Substance: BORTEZOMIB
     Dosage: 1.3 MILLIGRAM/SQ. METER
     Route: 058
     Dates: start: 20171110, end: 20171110
  48. BENDROFLUMETHIAZIDE [Suspect]
     Active Substance: BENDROFLUMETHIAZIDE
     Dosage: 3 MILLIGRAM, QD
     Route: 065
  49. ALLOPURINOL. [Suspect]
     Active Substance: ALLOPURINOL
     Dosage: 300 MILLIGRAM, QD
     Route: 065
     Dates: start: 20171120
  50. ALLOPURINOL. [Suspect]
     Active Substance: ALLOPURINOL
     Dosage: 300 UNK
     Route: 065
  51. MELPHALAN. [Suspect]
     Active Substance: MELPHALAN
     Dosage: 14 MILLIGRAM, QD
     Route: 065
     Dates: start: 20171103, end: 20171103
  52. PREDNISONE. [Suspect]
     Active Substance: PREDNISONE
     Indication: PLASMA CELL LEUKAEMIA
     Dosage: 70 MILLIGRAM, 1 CYCLE
     Route: 065
  53. VELCADE [Suspect]
     Active Substance: BORTEZOMIB
     Dosage: 1.3 MILLIGRAM/SQ. METER 1 CYCLE
     Route: 058
     Dates: start: 20171110, end: 20171114
  54. BENDROFLUMETHIAZIDE [Suspect]
     Active Substance: BENDROFLUMETHIAZIDE
     Dosage: 2 MILLIGRAM, QD
     Route: 065
     Dates: start: 20171110, end: 20171114
  55. MELPHALAN. [Suspect]
     Active Substance: MELPHALAN
     Dosage: UNK
     Route: 065
  56. MELPHALAN. [Suspect]
     Active Substance: MELPHALAN
     Dosage: UNK
     Dates: start: 20171110, end: 20171114
  57. PREDNISONE. [Suspect]
     Active Substance: PREDNISONE
     Dosage: UNK
  58. BENDROFLUMETHIAZIDE [Suspect]
     Active Substance: BENDROFLUMETHIAZIDE
     Dosage: 2 MILLIGRAM, QD
     Route: 065
     Dates: start: 20171107, end: 201711
  59. OMEPRAZOLE. [Suspect]
     Active Substance: OMEPRAZOLE
     Dosage: 10 MILLIGRAM, PRN (AS NEEDED)
     Route: 048

REACTIONS (16)
  - Abnormal behaviour [Recovered/Resolved]
  - Disorientation [Recovered/Resolved]
  - Off label use [Unknown]
  - Drug abuse [Unknown]
  - Paranoia [Recovered/Resolved]
  - Confusional state [Not Recovered/Not Resolved]
  - Paranoia [Not Recovered/Not Resolved]
  - Medication error [Unknown]
  - Hallucination [Recovered/Resolved]
  - Emotional distress [Not Recovered/Not Resolved]
  - Agitation [Not Recovered/Not Resolved]
  - Confusional state [Recovered/Resolved]
  - Agitation [Recovered/Resolved]
  - Product use in unapproved indication [Unknown]
  - Abnormal behaviour [Not Recovered/Not Resolved]
  - Disturbance in social behaviour [Recovered/Resolved]

NARRATIVE: CASE EVENT DATE: 20171107
